FAERS Safety Report 11715785 (Version 1)
Quarter: 2015Q4

REPORT INFORMATION
  Report Type: Report from Study
  Country: US (occurrence: US)
  Receive Date: 20151109
  Receipt Date: 20151109
  Transmission Date: 20160304
  Serious: No
  Sender: FDA-Public Use
  Company Number: US-CELGENEUS-USA-2015095727

PATIENT

DRUGS (2)
  1. THALOMID [Suspect]
     Active Substance: THALIDOMIDE
     Indication: OFF LABEL USE
  2. THALOMID [Suspect]
     Active Substance: THALIDOMIDE
     Indication: CROHN^S DISEASE
     Route: 048

REACTIONS (7)
  - Urinary tract disorder [Unknown]
  - Vomiting [Unknown]
  - Crohn^s disease [Unknown]
  - Gastrointestinal pain [Unknown]
  - Neuropathy peripheral [Unknown]
  - Nausea [Unknown]
  - Abdominal pain upper [Unknown]
